FAERS Safety Report 4783855-0 (Version None)
Quarter: 2005Q3

REPORT INFORMATION
  Report Type: 
  Country: None (occurrence: None)
  Receive Date: 20050927
  Receipt Date: 20050613
  Transmission Date: 20060218
  Serious: No
  Sender: FDA-Public Use
  Company Number: USA0506100337

PATIENT
  Age: 58 Year
  Sex: Male

DRUGS (4)
  1. STRATTERA [Suspect]
     Indication: ATTENTION DEFICIT/HYPERACTIVITY DISORDER
     Dates: start: 20030101
  2. ZYPREXA [Suspect]
     Indication: BIPOLAR DISORDER
     Dates: start: 20030101
  3. RISPERIDONE [Concomitant]
  4. DEPAKOTE [Concomitant]

REACTIONS (5)
  - BOWEL SOUNDS ABNORMAL [None]
  - DISTRACTIBILITY [None]
  - DRUG INEFFECTIVE [None]
  - FEELING JITTERY [None]
  - NAUSEA [None]
